FAERS Safety Report 9372084 (Version 1)
Quarter: 2013Q2

REPORT INFORMATION
  Report Type: Report from Study
  Country: US (occurrence: US)
  Receive Date: 20130627
  Receipt Date: 20130627
  Transmission Date: 20140414
  Serious: Yes (Other)
  Sender: FDA-Public Use
  Company Number: US-MYLANLABS-2012S1014427

PATIENT
  Age: 45 Year
  Sex: Female

DRUGS (4)
  1. CLOZAPINE TABLETS [Suspect]
     Indication: BIPOLAR DISORDER
     Dates: start: 20120508, end: 20121212
  2. LITHIUM [Concomitant]
  3. COGENTIN [Concomitant]
  4. IRON [Concomitant]

REACTIONS (1)
  - Granulocytopenia [Not Recovered/Not Resolved]
